FAERS Safety Report 21043765 (Version 1)
Quarter: 2022Q3

REPORT INFORMATION
  Report Type: Spontaneous
  Country: US (occurrence: None)
  Receive Date: 20220705
  Receipt Date: 20220705
  Transmission Date: 20221027
  Serious: Yes (Hospitalization)
  Sender: FDA-Public Use
  Company Number: None

PATIENT
  Sex: Female

DRUGS (50)
  1. PULMOZYME [Suspect]
     Active Substance: DORNASE ALFA
     Indication: Cystic fibrosis
     Dosage: OTHER QUANTITY : 2.5MG/2.5ML;?FREQUENCY : TWICE A DAY;?
     Route: 055
     Dates: start: 20220608
  2. ACETYLCYST SOL [Concomitant]
  3. ACETYLCYSTEINE [Concomitant]
     Active Substance: ACETYLCYSTEINE
  4. ALBUTEROL AER HFA [Concomitant]
  5. ALBUTEROL SULFATE [Concomitant]
     Active Substance: ALBUTEROL SULFATE
  6. ALTERA [Concomitant]
  7. APAP.CODEINE TAB [Concomitant]
  8. AZELASTINE SPR [Concomitant]
  9. AZELASTINE HYDROCHLORIDE [Concomitant]
     Active Substance: AZELASTINE HYDROCHLORIDE
  10. AZITHROMYCIN [Concomitant]
     Active Substance: AZITHROMYCIN
  11. BENZONATATE [Concomitant]
  12. BROVANA [Concomitant]
     Active Substance: ARFORMOTEROL TARTRATE
  13. BROVANA NEB [Concomitant]
  14. BUDESONIDE [Concomitant]
     Active Substance: BUDESONIDE
  15. BUDESONIDE SUS [Concomitant]
  16. CATHFLOACTI [Concomitant]
  17. CAYSTON [Concomitant]
     Active Substance: AZTREONAM
  18. CETIRIZINE HCL [Concomitant]
     Active Substance: CETIRIZINE HYDROCHLORIDE
  19. CREON [Concomitant]
  20. DEEP SEA SPR [Concomitant]
  21. DIPHENHYDRAM [Concomitant]
  22. ERYTHROMYCIN BASE [Concomitant]
     Active Substance: ERYTHROMYCIN
  23. ERYTHROMYCIN [Concomitant]
     Active Substance: ERYTHROMYCIN
  24. ESOMEPRAZOLE MAGNESIUM [Concomitant]
     Active Substance: ESOMEPRAZOLE MAGNESIUM
  25. FASENRA [Concomitant]
     Active Substance: BENRALIZUMAB
  26. FEXOFENADINE HCL [Concomitant]
     Active Substance: FEXOFENADINE HYDROCHLORIDE
  27. FLUTICASONE SPR [Concomitant]
  28. FLUTICASONE PROPIONATE [Concomitant]
     Active Substance: FLUTICASONE PROPIONATE
  29. FOLIC ACID [Concomitant]
     Active Substance: FOLIC ACID
  30. GLUCAGON KIT [Concomitant]
  31. HYDROXYCHLOROQUINE [Concomitant]
     Active Substance: HYDROXYCHLOROQUINE
  32. SODIUM CHLORIDE [Concomitant]
     Active Substance: SODIUM CHLORIDE
  33. IBUPROFEN [Concomitant]
     Active Substance: IBUPROFEN
  34. INSULIN LISP [Concomitant]
  35. IPRATROPIUM/SOL ALBUTER [Concomitant]
  36. METOCLOPRAMIDE [Concomitant]
     Active Substance: METOCLOPRAMIDE
  37. METOCLOPRAMIDE HYDROCHLORIDE [Concomitant]
     Active Substance: METOCLOPRAMIDE HYDROCHLORIDE
  38. MONTELUKAST SODIUM [Concomitant]
     Active Substance: MONTELUKAST SODIUM
  39. MVW [Concomitant]
  40. NAPROXEN [Concomitant]
     Active Substance: NAPROXEN
  41. NORTRIPTYLINE [Concomitant]
     Active Substance: NORTRIPTYLINE
  42. ONDANSETRON [Concomitant]
     Active Substance: ONDANSETRON
  43. ONE TOUCH ULTRA TEST [Concomitant]
  44. ONETOUCH VERIO TEST STRIP [Concomitant]
  45. CALCIUM [Concomitant]
     Active Substance: CALCIUM
  46. OYSTER SHELL [Suspect]
     Active Substance: OSTREA EDULIS SHELL
  47. PARI ALTERA NEBULIZER HAN [Concomitant]
  48. POLYETHYLENE GLYCOL [Concomitant]
     Active Substance: POLYETHYLENE GLYCOL
  49. PREDNISONE [Concomitant]
     Active Substance: PREDNISONE
  50. PROMETHAZINE SYP [Concomitant]

REACTIONS (2)
  - Illness [None]
  - Condition aggravated [None]
